FAERS Safety Report 9199948 (Version 1)
Quarter: 2013Q1

REPORT INFORMATION
  Report Type: Spontaneous
  Country: FR (occurrence: FR)
  Receive Date: 20130329
  Receipt Date: 20130329
  Transmission Date: 20140127
  Serious: Yes (Other)
  Sender: FDA-Public Use
  Company Number: FR-AMGEN-FRASP2013016478

PATIENT
  Age: 72 Year
  Sex: Male

DRUGS (6)
  1. XGEVA [Suspect]
     Indication: PROSTATE CANCER METASTATIC
     Dosage: UNK
     Dates: start: 20130202
  2. JEVTANA [Concomitant]
     Indication: PROSTATE CANCER
  3. CALCIUM [Concomitant]
  4. VITAMIN D /00107901/ [Concomitant]
  5. ANTIHYPERTENSIVES [Concomitant]
     Indication: HYPERTENSION
  6. ARANESP [Concomitant]
     Dosage: UNK

REACTIONS (6)
  - Renal failure [Unknown]
  - Feeling abnormal [Unknown]
  - Anaemia [Unknown]
  - Blood calcium abnormal [Unknown]
  - Vitamin D decreased [Unknown]
  - Dysgeusia [Unknown]
